FAERS Safety Report 7934988-9 (Version None)
Quarter: 2011Q4

REPORT INFORMATION
  Report Type: 
  Country: None (occurrence: None)
  Receive Date: 20111118
  Receipt Date: 20111102
  Transmission Date: 20120403
  Serious: Yes (Other)
  Sender: FDA-Public Use
  Company Number: 2011AP002172

PATIENT
  Age: 29 Year
  Sex: Male

DRUGS (1)
  1. SERTRALINE HYDROCHLORIDE [Suspect]
     Indication: DEPRESSED MOOD
     Dosage: PO
     Route: 048
     Dates: start: 20110131, end: 20110301

REACTIONS (4)
  - PHYSICAL ASSAULT [None]
  - PERSONALITY CHANGE [None]
  - AGGRESSION [None]
  - AMNESIA [None]
